FAERS Safety Report 20948147 (Version 4)
Quarter: 2022Q2

REPORT INFORMATION
  Report Type: Spontaneous
  Country: IT (occurrence: IT)
  Receive Date: 20220611
  Receipt Date: 20220624
  Transmission Date: 20220721
  Serious: No
  Sender: FDA-Public Use
  Company Number: IT-SA-SAC20220608001940

PATIENT
  Age: 83 Year
  Sex: Female

DRUGS (2)
  1. INSULIN GLARGINE\LIXISENATIDE [Suspect]
     Active Substance: INSULIN GLARGINE\LIXISENATIDE
     Indication: Diabetes mellitus
     Dosage: 16-18 IU AT LUNCH
     Dates: start: 2015
  2. APIDRA [Suspect]
     Active Substance: INSULIN GLULISINE
     Dosage: APIDRA 2/4 UNITS IN THE EVENING

REACTIONS (1)
  - Product prescribing issue [Unknown]
